FAERS Safety Report 25149125 (Version 4)
Quarter: 2025Q2

REPORT INFORMATION
  Report Type: Report from Study
  Country: GB (occurrence: GB)
  Receive Date: 20250402
  Receipt Date: 20250617
  Transmission Date: 20250716
  Serious: Yes (Other)
  Sender: SAMSUNG BIOEPIS
  Company Number: GB-SAMSUNG BIOEPIS-SB-2025-11348

PATIENT
  Age: 70 Year
  Sex: Male

DRUGS (2)
  1. ETANERCEPT [Suspect]
     Active Substance: ETANERCEPT
     Indication: Rheumatoid arthritis
     Route: 058
  2. ASPIRIN [Concomitant]
     Active Substance: ASPIRIN
     Indication: Product used for unknown indication

REACTIONS (14)
  - Myocardial infarction [Unknown]
  - Neoplasm malignant [Unknown]
  - Lower respiratory tract infection [Unknown]
  - Appendicitis [Unknown]
  - Rheumatoid arthritis [Unknown]
  - Respiratory syncytial virus infection [Unknown]
  - Infection [Unknown]
  - Respiratory tract infection [Unknown]
  - Cellulitis [Unknown]
  - COVID-19 [Unknown]
  - Immune system disorder [Unknown]
  - Scratch [Unknown]
  - Bone pain [Unknown]
  - Fatigue [Unknown]
